FAERS Safety Report 12623230 (Version 1)
Quarter: 2016Q3

REPORT INFORMATION
  Report Type: Spontaneous
  Country: US (occurrence: US)
  Receive Date: 20160804
  Receipt Date: 20160804
  Transmission Date: 20161109
  Serious: No
  Sender: FDA-Public Use
  Company Number: US-BAYER-2016-151452

PATIENT
  Age: 77 Year
  Sex: Female

DRUGS (1)
  1. GADAVIST [Suspect]
     Active Substance: GADOBUTROL
     Indication: ANGIOGRAM
     Dosage: 10 ML, ONCE
     Route: 042
     Dates: start: 20160802, end: 20160802

REACTIONS (5)
  - Contrast media allergy [None]
  - Erythema [None]
  - Skin warm [None]
  - Eye pruritus [None]
  - Throat irritation [None]

NARRATIVE: CASE EVENT DATE: 20160802
